FAERS Safety Report 15753770 (Version 1)
Quarter: 2018Q4

REPORT INFORMATION
  Report Type: Spontaneous
  Country: US (occurrence: US)
  Receive Date: 20181222
  Receipt Date: 20181222
  Transmission Date: 20190205
  Serious: No
  Sender: FDA-Public Use
  Company Number: US-009507513-1812USA000833

PATIENT
  Age: 10 Year
  Sex: Female

DRUGS (1)
  1. TICE BCG [Suspect]
     Active Substance: BACILLUS CALMETTE-GUERIN SUBSTRAIN TICE LIVE ANTIGEN
     Indication: BLADDER CANCER
     Dosage: 50 MILLIGRAM, CYCLICAL
     Route: 043

REACTIONS (4)
  - Micturition urgency [Unknown]
  - Fatigue [Unknown]
  - Pollakiuria [Unknown]
  - Product use issue [Unknown]
